FAERS Safety Report 12472046 (Version 1)
Quarter: 2016Q2

REPORT INFORMATION
  Report Type: Spontaneous
  Country: US (occurrence: None)
  Receive Date: 20160615
  Receipt Date: 20160615
  Transmission Date: 20160815
  Serious: Yes (Hospitalization)
  Sender: FDA-Public Use
  Company Number: None

PATIENT
  Age: 70 Year
  Sex: Female
  Weight: 86.5 kg

DRUGS (11)
  1. EMLA [Concomitant]
     Active Substance: LIDOCAINE\PRILOCAINE
  2. ASPIRIN 81MG [Suspect]
     Active Substance: ASPIRIN
     Indication: CORONARY ARTERY DISEASE
     Route: 048
  3. TOPROL XL [Concomitant]
     Active Substance: METOPROLOL SUCCINATE
  4. HUMALOG [Concomitant]
     Active Substance: INSULIN LISPRO
  5. PROVENTIL [Concomitant]
     Active Substance: ALBUTEROL
  6. COLACE [Concomitant]
     Active Substance: DOCUSATE SODIUM
  7. IMDUR [Concomitant]
     Active Substance: ISOSORBIDE MONONITRATE
  8. APIXIBAN  2.5MG [Suspect]
     Active Substance: APIXABAN
     Indication: ATRIAL FIBRILLATION
     Route: 048
  9. SYNTHROID [Concomitant]
     Active Substance: LEVOTHYROXINE SODIUM
  10. RENVELA [Concomitant]
     Active Substance: SEVELAMER CARBONATE
  11. RANEXA [Concomitant]
     Active Substance: RANOLAZINE

REACTIONS (4)
  - Haemorrhagic anaemia [None]
  - Gastrointestinal arteriovenous malformation [None]
  - Gastrointestinal haemorrhage [None]
  - Condition aggravated [None]

NARRATIVE: CASE EVENT DATE: 20151117
